FAERS Safety Report 10174881 (Version 1)
Quarter: 2014Q2

REPORT INFORMATION
  Report Type: Spontaneous
  Country: US (occurrence: None)
  Receive Date: 20140416
  Receipt Date: 20140416
  Transmission Date: 20141212
  Serious: Yes (Hospitalization)
  Sender: FDA-Public Use
  Company Number: 163-POMAL-13124574

PATIENT
  Age: 63 Year
  Sex: Male

DRUGS (1)
  1. POMALYST (POMALIDOMIDE) (4  MILLIGRAM, CAPSULES) [Suspect]
     Indication: PLASMA CELL MYELOMA
     Dosage: TEMPORARILY INTERRUPTED
     Route: 048
     Dates: start: 20130311

REACTIONS (1)
  - Deep vein thrombosis [None]
